FAERS Safety Report 6792789-1 (Version None)
Quarter: 2010Q2

REPORT INFORMATION
  Report Type: 
  Country: None (occurrence: None)
  Receive Date: 20100624
  Receipt Date: 20081003
  Transmission Date: 20101027
  Serious: Yes (Other)
  Sender: FDA-Public Use
  Company Number: US-PFIZER INC-2008083447

PATIENT

DRUGS (1)
  1. GEODON [Suspect]
     Dates: start: 20080801

REACTIONS (1)
  - SWELLING FACE [None]
